FAERS Safety Report 15997243 (Version 1)
Quarter: 2019Q1

REPORT INFORMATION
  Report Type: Spontaneous
  Country: US (occurrence: US)
  Receive Date: 20190222
  Receipt Date: 20190222
  Transmission Date: 20190418
  Serious: Yes (Other)
  Sender: FDA-Public Use
  Company Number: PHEH2019US008047

PATIENT
  Sex: Male

DRUGS (1)
  1. TASIGNA [Suspect]
     Active Substance: NILOTINIB
     Indication: CHRONIC MYELOID LEUKAEMIA
     Dosage: 02 DF, BID
     Route: 048
     Dates: start: 20111024

REACTIONS (25)
  - Coronary artery disease [Unknown]
  - Angina unstable [Recovered/Resolved]
  - Pneumonia [Recovered/Resolved]
  - Diabetes mellitus [Recovered/Resolved]
  - Psoriasis [Recovered/Resolved]
  - Mitral valve incompetence [Unknown]
  - Hepatitis [Recovered/Resolved]
  - Obesity [Unknown]
  - Depression [Recovered/Resolved]
  - Hyperlipidaemia [Recovered/Resolved]
  - Anaemia [Unknown]
  - Diverticulum [Unknown]
  - Hypertension [Unknown]
  - Cardiac failure congestive [Recovered/Resolved]
  - Sleep apnoea syndrome [Recovered/Resolved]
  - Gastroenteritis [Unknown]
  - Dyspnoea [Unknown]
  - Myocardial infarction [Recovered/Resolved]
  - Chest pain [Unknown]
  - Cough [Unknown]
  - Tricuspid valve incompetence [Unknown]
  - Peptic ulcer [Unknown]
  - Chronic obstructive pulmonary disease [Unknown]
  - Bronchitis [Unknown]
  - Asthenia [Unknown]
